FAERS Safety Report 5573295-9 (Version None)
Quarter: 2007Q4

REPORT INFORMATION
  Report Type: 
  Country: None (occurrence: None)
  Receive Date: 20071224
  Receipt Date: 20071219
  Transmission Date: 20080405
  Serious: Yes (Other)
  Sender: FDA-Public Use
  Company Number: PHEH2007US16049

PATIENT
  Sex: Male

DRUGS (3)
  1. TIKOSYN [Suspect]
  2. LASIX [Concomitant]
  3. TEKTURNA [Suspect]
     Dosage: UNK, QD
     Route: 048

REACTIONS (2)
  - ATRIAL FIBRILLATION [None]
  - DRUG INTERACTION [None]
